FAERS Safety Report 15885401 (Version 1)
Quarter: 2019Q1

REPORT INFORMATION
  Report Type: Spontaneous
  Country: FR (occurrence: FR)
  Receive Date: 20190129
  Receipt Date: 20190129
  Transmission Date: 20190417
  Serious: Yes (Hospitalization)
  Sender: FDA-Public Use
  Company Number: FR-TEVA-2019-FR-1004567

PATIENT
  Age: 57 Year
  Sex: Male
  Weight: 85 kg

DRUGS (2)
  1. AMOXICILLINE [Suspect]
     Active Substance: AMOXICILLIN
     Indication: SELF-MEDICATION
     Route: 048
     Dates: start: 201810, end: 201810
  2. ACIDE CLAVULANIQUE [Suspect]
     Active Substance: CLAVULANIC ACID
     Indication: SELF-MEDICATION
     Route: 048
     Dates: start: 201810, end: 201810

REACTIONS (1)
  - Drug reaction with eosinophilia and systemic symptoms [Recovering/Resolving]

NARRATIVE: CASE EVENT DATE: 20181202
